FAERS Safety Report 23161135 (Version 2)
Quarter: 2023Q4

REPORT INFORMATION
  Report Type: Report from Study
  Country: BD (occurrence: BD)
  Receive Date: 20231108
  Receipt Date: 20231215
  Transmission Date: 20240110
  Serious: Yes (Other)
  Sender: FDA-Public Use
  Company Number: BD-002147023-NVSC2022BD303085

PATIENT
  Age: 42 Year
  Sex: Male
  Weight: 72 kg

DRUGS (2)
  1. ENTRESTO [Suspect]
     Active Substance: SACUBITRIL\VALSARTAN
     Indication: Cardiac failure chronic
     Dosage: 200 MG
     Route: 065
     Dates: start: 202111
  2. ENTRESTO [Suspect]
     Active Substance: SACUBITRIL\VALSARTAN
     Dosage: 200 MG, QD
     Route: 065

REACTIONS (40)
  - Peptic ulcer [Recovering/Resolving]
  - Abdominal distension [Recovering/Resolving]
  - Abdominal rigidity [Recovering/Resolving]
  - Dysuria [Recovering/Resolving]
  - Nocturnal dyspnoea [Recovering/Resolving]
  - Dermatitis allergic [Recovering/Resolving]
  - Tonsillitis [Recovering/Resolving]
  - Pain [Recovering/Resolving]
  - Joint swelling [Recovering/Resolving]
  - Hyperhidrosis [Recovering/Resolving]
  - Stress [Recovering/Resolving]
  - Temperature intolerance [Recovering/Resolving]
  - Skin lesion [Recovering/Resolving]
  - Peripheral swelling [Recovering/Resolving]
  - Oedema peripheral [Recovering/Resolving]
  - Chest discomfort [Recovering/Resolving]
  - Pyrexia [Recovering/Resolving]
  - Palpitations [Recovering/Resolving]
  - Chest pain [Recovering/Resolving]
  - Orthopnoea [Recovering/Resolving]
  - Anxiety [Recovering/Resolving]
  - Gastrooesophageal reflux disease [Recovering/Resolving]
  - Gait inability [Recovering/Resolving]
  - Hiccups [Recovering/Resolving]
  - Throat irritation [Recovering/Resolving]
  - Sensation of foreign body [Recovering/Resolving]
  - Speech disorder [Recovering/Resolving]
  - Arthralgia [Recovering/Resolving]
  - Decreased appetite [Recovering/Resolving]
  - Sleep disorder [Recovering/Resolving]
  - Urinary incontinence [Recovering/Resolving]
  - Cough [Recovering/Resolving]
  - Asthenia [Recovering/Resolving]
  - Blood pressure decreased [Recovering/Resolving]
  - Eczema weeping [Recovering/Resolving]
  - Pustule [Recovering/Resolving]
  - Hypersensitivity [Recovering/Resolving]
  - Pruritus [Recovering/Resolving]
  - Swelling face [Recovering/Resolving]
  - Product dose omission issue [Unknown]

NARRATIVE: CASE EVENT DATE: 20221201
